FAERS Safety Report 4883514-X (Version None)
Quarter: 2006Q1

REPORT INFORMATION
  Report Type: 
  Country: None (occurrence: None)
  Receive Date: 20060117
  Receipt Date: 20060117
  Transmission Date: 20060701
  Serious: Yes (Hospitalization, Other)
  Sender: FDA-Public Use
  Company Number: None

PATIENT
  Age: 46 Year
  Sex: Female
  Weight: 72.5755 kg

DRUGS (3)
  1. ZOLOFT [Suspect]
     Indication: ANXIETY
     Dosage: 25 MG    1/EVE   PO
     Route: 048
     Dates: start: 20051220, end: 20051226
  2. ZOLOFT [Suspect]
     Indication: STRESS
     Dosage: 25 MG    1/EVE   PO
     Route: 048
     Dates: start: 20051220, end: 20051226
  3. ZOLOFT [Suspect]
     Dosage: 50MG    1/EVE   PO
     Route: 048
     Dates: start: 20051227, end: 20051228

REACTIONS (9)
  - CRYING [None]
  - DECREASED INTEREST [None]
  - DEPRESSION [None]
  - FEELING ABNORMAL [None]
  - HEART RATE IRREGULAR [None]
  - INSOMNIA [None]
  - NERVOUSNESS [None]
  - PALPITATIONS [None]
  - RESTLESSNESS [None]
